FAERS Safety Report 7286534-3 (Version None)
Quarter: 2011Q1

REPORT INFORMATION
  Report Type: 
  Country: None (occurrence: None)
  Receive Date: 20110210
  Receipt Date: 20110128
  Transmission Date: 20110831
  Serious: Yes (Other)
  Sender: FDA-Public Use
  Company Number: FR-ELI_LILLY_AND_COMPANY-FR201101007441

PATIENT
  Age: 70 Year
  Sex: Male
  Weight: 89.2 kg

DRUGS (1)
  1. GEMZAR [Suspect]
     Dosage: 1000 MG/M2, OTHER
     Route: 065

REACTIONS (1)
  - EXTREMITY NECROSIS [None]
